FAERS Safety Report 19590834 (Version 2)
Quarter: 2021Q3

REPORT INFORMATION
  Report Type: Spontaneous
  Country: US (occurrence: US)
  Receive Date: 20210721
  Receipt Date: 20210915
  Transmission Date: 20211014
  Serious: No
  Sender: FDA-Public Use
  Company Number: US-SA-2021SA234185

PATIENT
  Age: 76 Year
  Sex: Male

DRUGS (1)
  1. CAPRELSA [Suspect]
     Active Substance: VANDETANIB
     Indication: THYROID CANCER
     Dosage: 200 MG, QD
     Route: 048
     Dates: start: 20210619

REACTIONS (5)
  - Dysphonia [Unknown]
  - Blood pressure increased [Unknown]
  - Asthenia [Unknown]
  - Laboratory test abnormal [Unknown]
  - Adverse drug reaction [Unknown]
